FAERS Safety Report 14497850 (Version 1)
Quarter: 2018Q1

REPORT INFORMATION
  Report Type: Spontaneous
  Country: HU (occurrence: HU)
  Receive Date: 20180207
  Receipt Date: 20180207
  Transmission Date: 20180509
  Serious: Yes (Life-Threatening, Hospitalization)
  Sender: FDA-Public Use
  Company Number: HU-ELI_LILLY_AND_COMPANY-HU201802002141

PATIENT
  Age: 55 Year
  Sex: Female

DRUGS (7)
  1. ERBITUX [Suspect]
     Active Substance: CETUXIMAB
     Indication: OROPHARYNGEAL NEOPLASM
     Dosage: 660 MG, UNKNOWN
     Route: 042
     Dates: start: 20171212, end: 20171212
  2. CLEXANE [Concomitant]
     Active Substance: ENOXAPARIN SODIUM
     Indication: PROPHYLAXIS
     Dosage: 4000 IU, DAILY
     Route: 058
     Dates: start: 20171212, end: 20171224
  3. FLUOROURACIL ACCORD                /00098801/ [Suspect]
     Active Substance: FLUOROURACIL
     Indication: OROPHARYNGEAL NEOPLASM
     Dosage: 1250 MG, DAILY
     Route: 042
     Dates: start: 20171212, end: 20171216
  4. ACCOFIL [Concomitant]
     Active Substance: FILGRASTIM
     Indication: PROPHYLAXIS
     Dosage: 48 MILLION IU, DAILY
     Route: 058
  5. CISPLATIN ACCORD [Suspect]
     Active Substance: CISPLATIN
     Indication: OROPHARYNGEAL NEOPLASM
     Dosage: 125 MG, UNKNOWN
     Route: 042
     Dates: start: 20171212, end: 20171212
  6. APO-FAMOTIDINE [Concomitant]
     Active Substance: FAMOTIDINE
     Indication: GASTROOESOPHAGEAL REFLUX DISEASE
     Dosage: 40 MG, BID EVERY 12 HOURS
     Route: 048
  7. ERBITUX [Suspect]
     Active Substance: CETUXIMAB
     Dosage: 413 MG, UNKNOWN
     Route: 042
     Dates: start: 20171219, end: 20171219

REACTIONS (3)
  - Peritonitis [Recovered/Resolved]
  - Gastrointestinal necrosis [Recovered/Resolved with Sequelae]
  - Febrile neutropenia [Unknown]

NARRATIVE: CASE EVENT DATE: 20171224
